FAERS Safety Report 17721210 (Version 19)
Quarter: 2021Q2

REPORT INFORMATION
  Report Type: Spontaneous
  Country: CA (occurrence: CA)
  Receive Date: 20200429
  Receipt Date: 20210628
  Transmission Date: 20210716
  Serious: Yes (Other)
  Sender: FDA-Public Use
  Company Number: CA-CELLTRION INC.-2019CA028187

PATIENT

DRUGS (35)
  1. INFLECTRA [Suspect]
     Active Substance: INFLIXIMAB-DYYB
     Dosage: 500 MG, AT 0, 2, 6, THEN EVERY 8 WEEKS
     Route: 042
     Dates: start: 20200207, end: 20200207
  2. INFLECTRA [Suspect]
     Active Substance: INFLIXIMAB-DYYB
     Indication: COLITIS ULCERATIVE
     Dosage: 500 MG, AT 0, 2, 6, THEN EVERY 8 WEEKS (0 WEEK DOSE)
     Route: 042
     Dates: start: 20191227, end: 20191227
  3. INFLECTRA [Suspect]
     Active Substance: INFLIXIMAB-DYYB
     Dosage: 500 MG, AT 0, 2, 6, THEN EVERY 8 WEEKS (RE?INDUCTION)
     Route: 042
     Dates: start: 20200930, end: 20200930
  4. INFLECTRA [Suspect]
     Active Substance: INFLIXIMAB-DYYB
     Dosage: 500 MG, AT 0, 2, 6, THEN EVERY 8 WEEKS (RE?INDUCTION)
     Route: 042
     Dates: start: 20210317, end: 20210317
  5. DIPHENHYDRAMINE. [Concomitant]
     Active Substance: DIPHENHYDRAMINE
     Indication: PREMEDICATION
     Dosage: 50 MG
     Dates: start: 20210611, end: 20210611
  6. GRAVOL [Concomitant]
     Active Substance: DIMENHYDRINATE
     Indication: PREMEDICATION
     Dosage: UNK
     Dates: start: 20210611, end: 20210611
  7. HYDROXYCHLOROQUINE [Concomitant]
     Active Substance: HYDROXYCHLOROQUINE
     Dosage: UNK
  8. INFLECTRA [Suspect]
     Active Substance: INFLIXIMAB-DYYB
     Dosage: 500 MG, AT 0, 2, 6, THEN EVERY 8 WEEKS (WEEK 6 DOSE)
     Route: 042
     Dates: start: 20200207, end: 20200207
  9. INFLECTRA [Suspect]
     Active Substance: INFLIXIMAB-DYYB
     Dosage: 500 MG, AT 0, 2, 6, THEN EVERY 8 WEEKS (0 WEEK DOSE, RE?INDUCTION)
     Route: 042
     Dates: start: 20200527, end: 20200527
  10. INFLECTRA [Suspect]
     Active Substance: INFLIXIMAB-DYYB
     Dosage: 500 MG, AT 0, 2, 6, THEN EVERY 8 WEEKS (RE?INDUCTION)
     Route: 042
     Dates: start: 20201125, end: 20201125
  11. INFLECTRA [Suspect]
     Active Substance: INFLIXIMAB-DYYB
     Dosage: 500 MG, AT 0, 2, 6, THEN EVERY 8 WEEKS (RE?INDUCTION)
     Route: 042
     Dates: start: 20210120
  12. METHOTREXATE. [Concomitant]
     Active Substance: METHOTREXATE
     Dosage: UNK
  13. INFLECTRA [Suspect]
     Active Substance: INFLIXIMAB-DYYB
     Dosage: 500 MG Q 0,2.6 WEEKS THEN EVERY 8 WEEKS
     Route: 042
     Dates: start: 20200207, end: 20200424
  14. INFLECTRA [Suspect]
     Active Substance: INFLIXIMAB-DYYB
     Dosage: 500 MG, AT 0, 2, 6, THEN EVERY 8 WEEKS (2 WEEK DOSE)
     Route: 042
     Dates: start: 20200610, end: 20200610
  15. INFLECTRA [Suspect]
     Active Substance: INFLIXIMAB-DYYB
     Dosage: 500 MG, AT 0, 2, 6, THEN EVERY 8 WEEKS (RE?INDUCTION)
     Route: 042
     Dates: start: 20200930, end: 20200930
  16. INFLECTRA [Suspect]
     Active Substance: INFLIXIMAB-DYYB
     Dosage: 800 MG EVERY 4 WEEKS
     Route: 042
     Dates: start: 20210517
  17. BENADRYL [Concomitant]
     Active Substance: DIPHENHYDRAMINE HYDROCHLORIDE
     Indication: PREMEDICATION
     Dosage: 25?50MG
     Route: 042
  18. BENADRYL [Concomitant]
     Active Substance: DIPHENHYDRAMINE HYDROCHLORIDE
     Dosage: 25?30MG
     Route: 042
  19. IRON [Concomitant]
     Active Substance: IRON
     Dosage: UNK
  20. ASACOL [Concomitant]
     Active Substance: MESALAMINE
     Dosage: 2.4 G, 2X/DAY
     Route: 048
  21. PAROXETINE. [Concomitant]
     Active Substance: PAROXETINE
     Dosage: UNK
  22. PREDNISONE. [Concomitant]
     Active Substance: PREDNISONE
     Dosage: UNK
  23. INFLECTRA [Suspect]
     Active Substance: INFLIXIMAB-DYYB
     Dosage: Q 6 WEEK DOSE ON 07FEB2020
     Route: 042
     Dates: start: 20200207, end: 20200424
  24. INFLECTRA [Suspect]
     Active Substance: INFLIXIMAB-DYYB
     Dosage: 500 MG, AT 0, 2, 6, THEN EVERY 8 WEEKS (RE?INDUCTION)
     Route: 042
     Dates: start: 20200722, end: 20200722
  25. INFLECTRA [Suspect]
     Active Substance: INFLIXIMAB-DYYB
     Dosage: 800 MG EVERY 4 WEEKS
     Route: 042
     Dates: start: 20210416
  26. INFLECTRA [Suspect]
     Active Substance: INFLIXIMAB-DYYB
     Dosage: 800 MG EVERY 4 WEEKS
     Route: 042
     Dates: start: 20210611
  27. ASACOL [Concomitant]
     Active Substance: MESALAMINE
     Dosage: 2.4 G, 2X/DAY
     Route: 048
  28. RIFAPENTINE [Concomitant]
     Active Substance: RIFAPENTINE
     Dosage: UNK
  29. INFLECTRA [Suspect]
     Active Substance: INFLIXIMAB-DYYB
     Dosage: 500 MG, AT 0, 2, 6, THEN EVERY 8 WEEKS (2 WEEK DOSE)
     Route: 042
     Dates: start: 20200108, end: 20200108
  30. INFLECTRA [Suspect]
     Active Substance: INFLIXIMAB-DYYB
     Dosage: 500 MG Q 2 WEEK DOSE ON 10JUN2020
     Route: 042
     Dates: start: 20200610, end: 20210317
  31. SULFASALAZINE. [Concomitant]
     Active Substance: SULFASALAZINE
     Dosage: 1 DF
     Route: 065
  32. TYLENOL [Concomitant]
     Active Substance: ACETAMINOPHEN
     Indication: PREMEDICATION
     Dosage: 650 MG
  33. INFLECTRA [Suspect]
     Active Substance: INFLIXIMAB-DYYB
     Dosage: 500 MG, AT 0, 2, 6, THEN EVERY 8 WEEKS
     Route: 042
     Dates: start: 20200424, end: 20200424
  34. INFLECTRA [Suspect]
     Active Substance: INFLIXIMAB-DYYB
     Dosage: 500 MG, AT 0, 2, 6, THEN EVERY 8 WEEKS (RE?INDUCTION)
     Route: 042
     Dates: start: 20200805, end: 20200805
  35. ACETAMINOPHEN. [Concomitant]
     Active Substance: ACETAMINOPHEN
     Indication: PREMEDICATION
     Dosage: 650 MG
     Dates: start: 20210611, end: 20210611

REACTIONS (19)
  - Intentional product use issue [Unknown]
  - Drug level below therapeutic [Unknown]
  - Dizziness [Unknown]
  - Chest discomfort [Recovering/Resolving]
  - Dizziness [Recovered/Resolved]
  - Nasopharyngitis [Unknown]
  - Pharyngitis streptococcal [Unknown]
  - Off label use [Unknown]
  - Off label use [Unknown]
  - Headache [Recovered/Resolved]
  - Sinusitis [Unknown]
  - Nausea [Unknown]
  - Hypotension [Recovered/Resolved]
  - Inappropriate schedule of product administration [Unknown]
  - Rheumatoid arthritis [Not Recovered/Not Resolved]
  - Weight decreased [Unknown]
  - Off label use [Unknown]
  - Candida infection [Unknown]
  - Dyspnoea [Unknown]

NARRATIVE: CASE EVENT DATE: 2020
